FAERS Safety Report 12166073 (Version 1)
Quarter: 2016Q1

REPORT INFORMATION
  Report Type: Spontaneous
  Country: US (occurrence: US)
  Receive Date: 20160309
  Receipt Date: 20160309
  Transmission Date: 20160526
  Serious: Yes (Other)
  Sender: FDA-Public Use
  Company Number: US-TEVA-641400USA

PATIENT
  Sex: Female

DRUGS (1)
  1. ZOLPIDEM [Suspect]
     Active Substance: ZOLPIDEM\ZOLPIDEM TARTRATE
     Indication: AUTOIMMUNE DISORDER

REACTIONS (5)
  - Autoimmune thyroiditis [Unknown]
  - Fibromyalgia [Unknown]
  - Lyme disease [Unknown]
  - Product use issue [Unknown]
  - Basedow^s disease [Unknown]
